FAERS Safety Report 9660424 (Version 1)
Quarter: 2013Q4

REPORT INFORMATION
  Report Type: Spontaneous
  Country: IT (occurrence: IT)
  Receive Date: 20131031
  Receipt Date: 20131031
  Transmission Date: 20140711
  Serious: Yes (Other)
  Sender: FDA-Public Use
  Company Number: IT-ROXANE LABORATORIES, INC.-2013-RO-01753RO

PATIENT
  Age: 38 Year
  Sex: Female

DRUGS (4)
  1. LITHIUM CARBONATE [Suspect]
     Indication: SUICIDAL BEHAVIOUR
     Dosage: 600 MG
  2. ALPRAZOLAM INTENSOL [ORAL SOLUTION (CONCENTRATE)] 1 MG/ML [Suspect]
     Dosage: 1.25 MG
  3. QUETIAPINE FUMARATE [Suspect]
     Dosage: 37.5 MG
  4. TETRABENAZINE [Suspect]
     Indication: HUNTINGTON^S DISEASE
     Dosage: 75 MG

REACTIONS (2)
  - Persecutory delusion [Unknown]
  - Jealous delusion [Unknown]
